FAERS Safety Report 7476986-8 (Version None)
Quarter: 2011Q2

REPORT INFORMATION
  Report Type: 
  Country: None (occurrence: None)
  Receive Date: 20110512
  Receipt Date: 20110503
  Transmission Date: 20111010
  Serious: Yes (Other)
  Sender: FDA-Public Use
  Company Number: US-GENENTECH-315480

PATIENT
  Sex: Female
  Weight: 104.76 kg

DRUGS (1)
  1. XOLAIR [Suspect]
     Indication: ASTHMA
     Dosage: 375 MG, Q2W
     Route: 058
     Dates: start: 20100709

REACTIONS (3)
  - DYSPNOEA [None]
  - PRURITUS [None]
  - URTICARIA [None]
